FAERS Safety Report 6638387-1 (Version None)
Quarter: 2010Q1

REPORT INFORMATION
  Report Type: 
  Country: None (occurrence: None)
  Receive Date: 20100317
  Receipt Date: 20100308
  Transmission Date: 20100710
  Serious: Yes (Death)
  Sender: FDA-Public Use
  Company Number: B0634747A

PATIENT
  Age: 64 Year
  Sex: Female

DRUGS (3)
  1. PAXIL [Suspect]
     Indication: DEPRESSION
     Dosage: 40MG PER DAY
     Route: 048
     Dates: end: 20100217
  2. ROHYPNOL [Concomitant]
  3. MEILAX [Concomitant]
     Route: 048

REACTIONS (1)
  - COMPLETED SUICIDE [None]
